FAERS Safety Report 17007959 (Version 3)
Quarter: 2021Q1

REPORT INFORMATION
  Report Type: Spontaneous
  Country: IN (occurrence: IN)
  Receive Date: 20191108
  Receipt Date: 20210108
  Transmission Date: 20210419
  Serious: Yes (Other)
  Sender: FDA-Public Use
  Company Number: IN-ROCHE-2457085

PATIENT
  Sex: Male
  Weight: 40 kg

DRUGS (6)
  1. CALCIUM [Concomitant]
     Active Substance: CALCIUM
     Indication: PAIN
  2. PARACETAMOL [Concomitant]
     Active Substance: ACETAMINOPHEN
     Indication: PAIN
  3. TRAMADOL. [Concomitant]
     Active Substance: TRAMADOL
     Indication: PAIN
  4. HEMLIBRA [Suspect]
     Active Substance: EMICIZUMAB-KXWH
     Indication: MASS
     Dosage: 3.0 MG/KG/WEEK FOR 4 WEEKS
     Route: 058
     Dates: start: 20190822
  5. MORPHINE [Concomitant]
     Active Substance: MORPHINE
     Route: 048
  6. HEMLIBRA [Suspect]
     Active Substance: EMICIZUMAB-KXWH
     Indication: HAEMOPHILIA A WITH ANTI FACTOR VIII
     Dosage: REDUCED DOSE TO 1.5MG/KG WEEKLY OR 3 MG/KG EVERY 2 WEEKS
     Route: 058
     Dates: start: 20190929

REACTIONS (3)
  - Haemarthrosis [Unknown]
  - Product prescribing error [Unknown]
  - Off label use [Unknown]
